FAERS Safety Report 14296124 (Version 1)
Quarter: 2017Q4

REPORT INFORMATION
  Report Type: Spontaneous
  Country: US (occurrence: US)
  Receive Date: 20171215
  Receipt Date: 20171215
  Transmission Date: 20180321
  Serious: No
  Sender: FDA-Public Use
  Company Number: None

PATIENT
  Sex: Male

DRUGS (1)
  1. CAPECITABINE 500 MG WEST-WARD [Suspect]
     Active Substance: CAPECITABINE
     Dosage: 4 TABLETS BID FOR 14 DAYS ON AND 7 DAYS OFF PO
     Route: 048
     Dates: start: 20171030

REACTIONS (4)
  - Weight decreased [None]
  - Hypoaesthesia [None]
  - Diarrhoea [None]
  - Dehydration [None]
